FAERS Safety Report 6317476-5 (Version None)
Quarter: 2009Q3

REPORT INFORMATION
  Report Type: 
  Country: None (occurrence: None)
  Receive Date: 20090820
  Receipt Date: 20090820
  Transmission Date: 20100115
  Serious: Yes (Other)
  Sender: FDA-Public Use
  Company Number: None

PATIENT
  Age: 57 Year
  Sex: Female
  Weight: 43.0917 kg

DRUGS (1)
  1. MYSOLINE [Suspect]
     Indication: CONVULSION
     Dosage: 250 MG 4 DAILY EVERY 6 HRS NEW TABLET FIRST TAKEN
     Dates: start: 20080917

REACTIONS (5)
  - COUGH [None]
  - DRUG INEFFECTIVE [None]
  - DYSPHAGIA [None]
  - PRODUCT QUALITY ISSUE [None]
  - THROAT IRRITATION [None]
